FAERS Safety Report 9565091 (Version 2)
Quarter: 2013Q4

REPORT INFORMATION
  Report Type: Spontaneous
  Country: GB (occurrence: GB)
  Receive Date: 20130930
  Receipt Date: 20131024
  Transmission Date: 20140711
  Serious: Yes (Other)
  Sender: FDA-Public Use
  Company Number: GB-AMGEN-GBRSP2013067135

PATIENT
  Age: 74 Year
  Sex: Male

DRUGS (4)
  1. ARANESP [Suspect]
     Indication: NEPHROGENIC ANAEMIA
     Dosage: 40 MUG, Q2WK
     Route: 065
  2. RAMIPRIL [Concomitant]
  3. ERYTHROPOETIN [Concomitant]
  4. FOLIC ACID [Concomitant]

REACTIONS (1)
  - Hypertension [Unknown]
